APPROVED DRUG PRODUCT: OLUX
Active Ingredient: CLOBETASOL PROPIONATE
Strength: 0.05% **Federal Register determination that product was not discontinued or withdrawn for safety or effectiveness reasons**
Dosage Form/Route: AEROSOL, FOAM;TOPICAL
Application: N021142 | Product #001
Applicant: PHARMOBEDIENT CONSULTING LLC
Approved: May 26, 2000 | RLD: Yes | RS: No | Type: DISCN